FAERS Safety Report 10384141 (Version 1)
Quarter: 2014Q3

REPORT INFORMATION
  Report Type: Spontaneous
  Country: US (occurrence: US)
  Receive Date: 20140814
  Receipt Date: 20140814
  Transmission Date: 20150326
  Serious: No
  Sender: FDA-Public Use
  Company Number: US-PFIZER INC-2014223955

PATIENT
  Age: 17 Year
  Sex: Female

DRUGS (2)
  1. ADVIL PM [Suspect]
     Active Substance: DIPHENHYDRAMINE CITRATE\IBUPROFEN
     Dosage: 4 LIQUI-GELS ONCE
  2. ADVIL PM [Suspect]
     Active Substance: DIPHENHYDRAMINE CITRATE\IBUPROFEN
     Dosage: UNK

REACTIONS (2)
  - Vomiting [Unknown]
  - Overdose [Unknown]

NARRATIVE: CASE EVENT DATE: 20140809
